FAERS Safety Report 5983578-6 (Version None)
Quarter: 2008Q4

REPORT INFORMATION
  Report Type: 
  Country: None (occurrence: None)
  Receive Date: 20081205
  Receipt Date: 20081205
  Transmission Date: 20090506
  Serious: No
  Sender: FDA-Public Use
  Company Number: None

PATIENT
  Age: 53 Year
  Sex: Female
  Weight: 119 kg

DRUGS (1)
  1. AVELOX [Suspect]
     Dosage: AVELOX 400MG/250ML 125ML 1 HR IV
     Route: 042
     Dates: start: 20081129, end: 20081202

REACTIONS (3)
  - INJECTION SITE ERYTHEMA [None]
  - INJECTION SITE OEDEMA [None]
  - INJECTION SITE PRURITUS [None]
